FAERS Safety Report 24562656 (Version 3)
Quarter: 2024Q4

REPORT INFORMATION
  Report Type: Spontaneous
  Country: IL (occurrence: IL)
  Receive Date: 20241029
  Receipt Date: 20241115
  Transmission Date: 20250115
  Serious: Yes (Hospitalization)
  Sender: TEVA
  Company Number: IL-TEVA-VS-3257218

PATIENT
  Age: 54 Year
  Sex: Female

DRUGS (4)
  1. CLOPIDOGREL [Suspect]
     Active Substance: CLOPIDOGREL BISULFATE
     Indication: Thrombosis prophylaxis
     Route: 065
  2. DEXAMETHASONE ACETATE [Concomitant]
     Active Substance: DEXAMETHASONE ACETATE
     Indication: Light chain disease
     Route: 048
  3. CYCLOPHOSPHAMIDE [Concomitant]
     Active Substance: CYCLOPHOSPHAMIDE
     Indication: Light chain disease
     Route: 042
  4. VELCADE [Suspect]
     Active Substance: BORTEZOMIB
     Indication: Light chain disease
     Route: 058

REACTIONS (2)
  - Myocardial injury [Unknown]
  - Drug ineffective [Unknown]
